FAERS Safety Report 23447851 (Version 10)
Quarter: 2024Q3

REPORT INFORMATION
  Report Type: Report from Study
  Country: CA (occurrence: CA)
  Receive Date: 20240126
  Receipt Date: 20240917
  Transmission Date: 20241016
  Serious: Yes (Hospitalization, Other)
  Sender: GLAXOSMITHKLINE
  Company Number: CA-GLAXOSMITHKLINE-CA2023AMR086222

PATIENT

DRUGS (14)
  1. MEPOLIZUMAB [Suspect]
     Active Substance: MEPOLIZUMAB
     Indication: Asthma
     Dosage: 100 MG, Q4W
     Route: 058
     Dates: start: 20171205
  2. MEPOLIZUMAB [Suspect]
     Active Substance: MEPOLIZUMAB
     Dosage: 100 MG, Q4W
     Route: 058
  3. MEPOLIZUMAB [Suspect]
     Active Substance: MEPOLIZUMAB
     Indication: Asthma
     Dosage: 100 MG, Q4W
     Route: 058
  4. MEPOLIZUMAB [Suspect]
     Active Substance: MEPOLIZUMAB
     Indication: Asthma
     Dosage: 100 MG, Q4W
     Route: 058
  5. PREDNISONE [Suspect]
     Active Substance: PREDNISONE
     Indication: Product used for unknown indication
     Dosage: 25 MG X3 DAYS
     Dates: start: 202407
  6. PREDNISONE [Suspect]
     Active Substance: PREDNISONE
     Dosage: 20MG X3 DAYS
  7. PREDNISONE [Suspect]
     Active Substance: PREDNISONE
     Dosage: 15MG X3DAYS
  8. PREDNISONE [Suspect]
     Active Substance: PREDNISONE
     Dosage: 10MG X7 DAYS
  9. TIAZAC [Concomitant]
     Active Substance: DILTIAZEM HYDROCHLORIDE
     Indication: Product used for unknown indication
     Dosage: UNK
  10. VENTOLIN [Concomitant]
     Active Substance: ALBUTEROL SULFATE
     Indication: Product used for unknown indication
     Dosage: UNK
  11. SPIRIVA [Concomitant]
     Active Substance: TIOTROPIUM BROMIDE MONOHYDRATE
     Indication: Product used for unknown indication
     Dosage: UNK
  12. ADVAIR HFA [Concomitant]
     Active Substance: FLUTICASONE PROPIONATE\SALMETEROL XINAFOATE
     Indication: Product used for unknown indication
     Dosage: UNK
  13. SINGULAIR [Concomitant]
     Active Substance: MONTELUKAST SODIUM
     Indication: Product used for unknown indication
     Dosage: UNK
  14. METFORMIN [Concomitant]
     Active Substance: METFORMIN HYDROCHLORIDE
     Indication: Product used for unknown indication
     Dosage: UNK

REACTIONS (21)
  - Kidney infection [Unknown]
  - Pneumonia [Unknown]
  - Wheezing [Unknown]
  - Urinary tract infection [Unknown]
  - Chest discomfort [Recovering/Resolving]
  - Cough [Unknown]
  - Anxiety [Unknown]
  - Respiratory rate increased [Unknown]
  - Malaise [Unknown]
  - Headache [Unknown]
  - Nasal congestion [Not Recovered/Not Resolved]
  - Blood pressure increased [Unknown]
  - Back pain [Unknown]
  - Illness [Unknown]
  - Dyspnoea exertional [Unknown]
  - Fatigue [Unknown]
  - Oxygen saturation abnormal [Unknown]
  - Abdominal discomfort [Unknown]
  - Therapy interrupted [Unknown]
  - Product preparation issue [Unknown]
  - Inappropriate schedule of product administration [Unknown]

NARRATIVE: CASE EVENT DATE: 20240401
